FAERS Safety Report 7654146-5 (Version None)
Quarter: 2011Q3

REPORT INFORMATION
  Report Type: 
  Country: None (occurrence: None)
  Receive Date: 20110803
  Receipt Date: 20110726
  Transmission Date: 20111222
  Serious: Yes (Life-Threatening)
  Sender: FDA-Public Use
  Company Number: PHHY2011JP55820

PATIENT
  Sex: Male
  Weight: 45 kg

DRUGS (3)
  1. CYCLOSPORINE [Suspect]
     Indication: HEART TRANSPLANT
     Dosage: 175-235 MG, DAILY
     Route: 048
     Dates: start: 20070221
  2. STEROIDS NOS [Concomitant]
     Indication: HEART TRANSPLANT
     Dosage: 5 MG, DAILY
     Route: 048
     Dates: start: 20070221
  3. CELLCEPT [Concomitant]
     Indication: HEART TRANSPLANT
     Dosage: 1500 MG,DAILY
     Route: 048
     Dates: start: 20070221

REACTIONS (1)
  - HYPOXIC-ISCHAEMIC ENCEPHALOPATHY [None]
